FAERS Safety Report 11124657 (Version 1)
Quarter: 2015Q2

REPORT INFORMATION
  Report Type: Spontaneous
  Country: US (occurrence: US)
  Receive Date: 20150520
  Receipt Date: 20150520
  Transmission Date: 20150821
  Serious: No
  Sender: FDA-Public Use
  Company Number: US-SHIRE-US201504415

PATIENT
  Sex: Male

DRUGS (1)
  1. VYVANSE [Suspect]
     Active Substance: LISDEXAMFETAMINE DIMESYLATE
     Indication: BINGE EATING
     Dosage: 140 MG, 3X/DAY:TID
     Route: 048

REACTIONS (3)
  - Inappropriate schedule of drug administration [Unknown]
  - No adverse event [Unknown]
  - Prescribed overdose [Unknown]
